FAERS Safety Report 23970862 (Version 1)
Quarter: 2024Q2

REPORT INFORMATION
  Report Type: Spontaneous
  Country: US (occurrence: US)
  Receive Date: 20240613
  Receipt Date: 20240613
  Transmission Date: 20240716
  Serious: Yes (Other)
  Sender: FDA-Public Use
  Company Number: US-AMGEN-USASP2024111825

PATIENT
  Sex: Male

DRUGS (5)
  1. RAVICTI [Suspect]
     Active Substance: GLYCEROL PHENYLBUTYRATE
     Indication: Ornithine transcarbamoylase deficiency
     Dosage: 1.4 MILLILITER (1.54 G), Q8H
     Route: 048
  2. OMEPRAZOLE [Concomitant]
     Active Substance: DONEPEZIL HYDROCHLORIDE\OMEPRAZOLE\OMEPRAZOLE MAGNESIUM
     Dosage: 10 MILLIGRAM
  3. SODIUM BENZOATE [Concomitant]
     Active Substance: SODIUM BENZOATE
  4. CITRULLINE [Concomitant]
     Active Substance: CITRULLINE
     Dosage: 1000 1 G/4 G POWD PACK,
  5. LEVOCARNITINE HYDROCHLORIDE [Concomitant]
     Active Substance: LEVOCARNITINE HYDROCHLORIDE
     Dosage: 100 MILLIGRAM PER MILLILITRE

REACTIONS (2)
  - Liver transplant [Unknown]
  - Off label use [Unknown]
